FAERS Safety Report 26173425 (Version 1)
Quarter: 2025Q4

REPORT INFORMATION
  Report Type: Report from Study
  Country: EU (occurrence: EU)
  Receive Date: 20251218
  Receipt Date: 20251218
  Transmission Date: 20260117
  Serious: Yes (Other)
  Sender: ROCHE
  Company Number: EU-ROCHE-3348888

PATIENT
  Age: 74 Year
  Sex: Female
  Weight: 66.00 kg

DRUGS (11)
  1. ATEZOLIZUMAB [Suspect]
     Active Substance: ATEZOLIZUMAB
     Indication: Hepatocellular carcinoma
     Dosage: ON 02/AUG/2023, RECEIVED THE MOST RECENT DOSE OF STUDY DRUG PRIOR TO AE AND SAE
     Route: 041
     Dates: start: 20230329
  2. BEVACIZUMAB [Suspect]
     Active Substance: BEVACIZUMAB
     Indication: Hepatocellular carcinoma
  3. NORVASC [Concomitant]
     Active Substance: AMLODIPINE BESYLATE
  4. NOLIPREL 5 MG [Concomitant]
  5. BISOPROLOL FUMARATE [Concomitant]
     Active Substance: BISOPROLOL FUMARATE
  6. ESSENTIALE MAX [Concomitant]
     Dates: start: 20230621, end: 20230823
  7. URSODIOL [Concomitant]
     Active Substance: URSODIOL
     Dates: start: 20230621, end: 20230823
  8. ARGININE-SORBITOL 500 MG [Concomitant]
     Dates: start: 20230823, end: 20230823
  9. ESSENTIALE N FORTE [Concomitant]
  10. SORAFENIB [Concomitant]
     Active Substance: SORAFENIB
     Dates: start: 20240109, end: 20240808
  11. CABOZANTINIB [Concomitant]
     Active Substance: CABOZANTINIB
     Dates: start: 20241206, end: 20250207

REACTIONS (3)
  - Liver injury [Recovered/Resolved]
  - Hand dermatitis [Recovered/Resolved]
  - Prurigo [Recovered/Resolved with Sequelae]

NARRATIVE: CASE EVENT DATE: 20230416
